FAERS Safety Report 8246906-7 (Version None)
Quarter: 2012Q1

REPORT INFORMATION
  Report Type: 
  Country: None (occurrence: None)
  Receive Date: 20120330
  Receipt Date: 20120329
  Transmission Date: 20120608
  Serious: No
  Sender: FDA-Public Use
  Company Number: US-PFIZER INC-2012081009

PATIENT
  Sex: Male
  Weight: 81.633 kg

DRUGS (1)
  1. XANAX [Suspect]
     Indication: ANXIETY
     Dosage: 2 MG, 3X/DAY
     Route: 048
     Dates: start: 20080101, end: 20080101

REACTIONS (3)
  - AGGRESSION [None]
  - INSOMNIA [None]
  - FEELING ABNORMAL [None]
